FAERS Safety Report 7163132-3 (Version None)
Quarter: 2010Q4

REPORT INFORMATION
  Report Type: 
  Country: None (occurrence: None)
  Receive Date: 20101215
  Receipt Date: 20101207
  Transmission Date: 20110411
  Serious: Yes (Hospitalization)
  Sender: FDA-Public Use
  Company Number: US-BRACCO-005646

PATIENT
  Sex: Male
  Weight: 96 kg

DRUGS (21)
  1. LACTULOSE [Concomitant]
  2. PRILOSEC [Concomitant]
  3. IRON [Concomitant]
  4. ALBUTEROL [Concomitant]
  5. PEPCID [Concomitant]
  6. INDERAL [Concomitant]
  7. ALTACE [Concomitant]
  8. NORVASC [Concomitant]
     Dosage: ADMINISTED DURING PATIENT HOSPITALISATION (DOSE NOT REPORTED)
     Dates: start: 20100101
  9. NORVASC [Concomitant]
     Dosage: PRIOR TO PATIENT HOSPITALIZATION
     Dates: end: 20101129
  10. COMBIVENT [Concomitant]
  11. FERROUS SULFATE [Concomitant]
  12. MULTIHANCE [Suspect]
     Indication: NUCLEAR MAGNETIC RESONANCE IMAGING
     Dates: start: 20101207, end: 20101207
  13. MULTIHANCE [Suspect]
     Indication: OSTEOMYELITIS
     Dates: start: 20101207, end: 20101207
  14. HEPARIN [Concomitant]
  15. XIFAXAN [Concomitant]
     Dates: start: 20101130
  16. K-DUR [Concomitant]
  17. VANCOMYCIN [Concomitant]
     Indication: OSTEOMYELITIS
     Dates: start: 20101207
  18. NOVOLOG [Concomitant]
     Dosage: SLIDING SCALE 70-120, NO UNTIS, 120-150, 2 UNITS, }150, INFUSION PROTOCOL
  19. NEURONTIN [Concomitant]
  20. MOTRIN [Concomitant]
  21. PREDNISONE [Concomitant]
     Dates: start: 20101203

REACTIONS (3)
  - ANAPHYLACTIC REACTION [None]
  - CARDIAC ARREST [None]
  - RESPIRATORY ARREST [None]
